FAERS Safety Report 4711000-6 (Version None)
Quarter: 2005Q2

REPORT INFORMATION
  Report Type: 
  Country: None (occurrence: None)
  Receive Date: 20050629
  Receipt Date: 20050509
  Transmission Date: 20051028
  Serious: No
  Sender: FDA-Public Use
  Company Number: 05P-163-0285377-00

PATIENT
  Age: 81 Year
  Sex: Female
  Weight: 56.6996 kg

DRUGS (8)
  1. HUMIRA [Suspect]
     Indication: RHEUMATOID ARTHRITIS
     Dosage: 40 MG, 1 IN 2 WK, SUBCUTANEOUS
     Route: 058
     Dates: start: 20031107
  2. SERTRALINE HYDROCHLORIDE [Concomitant]
  3. GLUCOSAMINE [Concomitant]
  4. CYANOCOBALAMIN [Concomitant]
  5. CALCIUM GLUCONATE [Concomitant]
  6. NAPROXEN SODIUM [Concomitant]
  7. MULTIVITAMIN [Concomitant]
  8. CYANOCOBALAMIN [Concomitant]

REACTIONS (9)
  - BLOOD PRESSURE INCREASED [None]
  - CONDITION AGGRAVATED [None]
  - CONTUSION [None]
  - FALL [None]
  - JOINT LOCK [None]
  - MOUTH INJURY [None]
  - RHEUMATOID ARTHRITIS [None]
  - TOOTHACHE [None]
  - UPPER LIMB FRACTURE [None]
